FAERS Safety Report 8524378-2 (Version None)
Quarter: 2012Q3

REPORT INFORMATION
  Report Type: 
  Country: None (occurrence: None)
  Receive Date: 20120720
  Receipt Date: 20120717
  Transmission Date: 20120928
  Serious: Yes (Hospitalization, Other)
  Sender: FDA-Public Use
  Company Number: AU-PFIZER INC-2012174105

PATIENT
  Age: 23 Year
  Sex: Female

DRUGS (2)
  1. DESVENLAFAXINE SUCCINATE [Suspect]
     Dosage: 100 MG, DAILY
  2. DESVENLAFAXINE SUCCINATE [Suspect]
     Indication: DEPRESSION
     Dosage: 50 MG, DAILY

REACTIONS (2)
  - DRUG WITHDRAWAL SYNDROME [None]
  - MYOSITIS [None]
